FAERS Safety Report 7165837 (Version 2)
Quarter: 2022Q4

REPORT INFORMATION
  Report Type: Spontaneous
  Country: FR (occurrence: FR)
  Receive Date: 20091103
  Receipt Date: 20221014
  Transmission Date: 20230113
  Serious: Yes (Death, Hospitalization)
  Sender: FDA-Public Use
  Company Number: FR-JNJFOC-20091008771

PATIENT
  Age: 30 Year
  Sex: Female

DRUGS (11)
  1. DOXORUBICIN HYDROCHLORIDE [Suspect]
     Active Substance: DOXORUBICIN HYDROCHLORIDE
     Indication: Non-Hodgkin^s lymphoma
     Route: 042
     Dates: start: 20090323, end: 20090710
  2. INTELENCE [Suspect]
     Active Substance: ETRAVIRINE
     Indication: HIV infection
     Route: 048
     Dates: end: 20090729
  3. TRUVADA [Suspect]
     Active Substance: EMTRICITABINE\TENOFOVIR DISOPROXIL FUMARATE
     Indication: HIV infection
     Dates: end: 20090729
  4. FLUCONAZOLE [Suspect]
     Active Substance: FLUCONAZOLE
     Indication: Meningitis cryptococcal
     Route: 048
     Dates: start: 20090716
  5. FLUCONAZOLE [Suspect]
     Active Substance: FLUCONAZOLE
     Dosage: THERAPY END DATE: 29/SEP/2009
     Route: 048
     Dates: start: 20090721
  6. MABTHERA [Suspect]
     Active Substance: RITUXIMAB
     Indication: Non-Hodgkin^s lymphoma
     Dates: start: 20090323, end: 20090410
  7. VINCRISTINE [Suspect]
     Active Substance: VINCRISTINE
     Indication: Non-Hodgkin^s lymphoma
     Dates: start: 20090323, end: 20090710
  8. CYCLOPHOSPHAMIDE [Concomitant]
     Active Substance: CYCLOPHOSPHAMIDE
     Dates: end: 20090710
  9. PREDNISONE [Concomitant]
     Active Substance: PREDNISONE
     Dates: end: 20090710
  10. CANCIDAS [Concomitant]
     Active Substance: CASPOFUNGIN ACETATE
     Dates: start: 20090713, end: 20090713
  11. NEULASTA [Concomitant]
     Active Substance: PEGFILGRASTIM
     Dates: start: 20090716

REACTIONS (4)
  - Torsade de pointes [Fatal]
  - Cardio-respiratory arrest [Fatal]
  - Cryptococcosis [Unknown]
  - Off label use [Unknown]

NARRATIVE: CASE EVENT DATE: 20090323
